FAERS Safety Report 17618890 (Version 2)
Quarter: 2020Q2

REPORT INFORMATION
  Report Type: Spontaneous
  Country: AU (occurrence: AU)
  Receive Date: 20200402
  Receipt Date: 20200409
  Transmission Date: 20200713
  Serious: Yes (Other)
  Sender: FDA-Public Use
  Company Number: AU-REGENERON PHARMACEUTICALS, INC.-2020-27323

PATIENT

DRUGS (2)
  1. EYLEA [Suspect]
     Active Substance: AFLIBERCEPT
     Indication: PRODUCT USED FOR UNKNOWN INDICATION
     Dosage: UNK
     Dates: start: 20200113, end: 20200113
  2. EYLEA [Suspect]
     Active Substance: AFLIBERCEPT
     Dosage: UNK
     Dates: start: 20200214, end: 20200214

REACTIONS (4)
  - Fatigue [Unknown]
  - Crohn^s disease [Recovered/Resolved]
  - Balance disorder [Unknown]
  - Crohn^s disease [Recovered/Resolved]

NARRATIVE: CASE EVENT DATE: 20200116
